FAERS Safety Report 10174109 (Version 1)
Quarter: 2014Q2

REPORT INFORMATION
  Report Type: Spontaneous
  Country: FR (occurrence: FR)
  Receive Date: 20140515
  Receipt Date: 20140515
  Transmission Date: 20141212
  Serious: Yes (Hospitalization, Other)
  Sender: FDA-Public Use
  Company Number: FR-BRISTOL-MYERS SQUIBB COMPANY-20717807

PATIENT
  Age: 94 Year
  Sex: Female

DRUGS (1)
  1. COUMADINE [Suspect]
     Dosage: SCORED TABLET?HALF A TABLET
     Route: 048

REACTIONS (3)
  - Haematoma [Unknown]
  - Pneumonia [Unknown]
  - Fall [Unknown]
